FAERS Safety Report 16221765 (Version 1)
Quarter: 2019Q2

REPORT INFORMATION
  Report Type: Spontaneous
  Country: US (occurrence: US)
  Receive Date: 20190422
  Receipt Date: 20190422
  Transmission Date: 20190711
  Serious: No
  Sender: FDA-Public Use
  Company Number: US-AMGEN-USASP2019062504

PATIENT
  Age: 68 Year
  Sex: Male

DRUGS (1)
  1. KYPROLIS [Suspect]
     Active Substance: CARFILZOMIB
     Indication: PLASMA CELL MYELOMA
     Dosage: 120 MILLIGRAM, EVERY SATURDAY AND SUNDAY FOR 3 CONSECUTIVE WEEKS OF EACH MONTH AND 1 WEEK OFF
     Route: 065
     Dates: start: 201807

REACTIONS (1)
  - Dyspnoea [Not Recovered/Not Resolved]
